FAERS Safety Report 6275444-6 (Version None)
Quarter: 2009Q3

REPORT INFORMATION
  Report Type: 
  Country: None (occurrence: None)
  Receive Date: 20090721
  Receipt Date: 20090710
  Transmission Date: 20100115
  Serious: Yes (Other)
  Sender: FDA-Public Use
  Company Number: ZA-JNJFOC-20090703155

PATIENT
  Age: 7 Decade
  Sex: Male

DRUGS (3)
  1. TRAMACET [Suspect]
     Indication: DRUG USE FOR UNKNOWN INDICATION
     Route: 048
  2. ARCOXIA [Suspect]
     Indication: DRUG USE FOR UNKNOWN INDICATION
     Route: 065
  3. AUGMENTIN [Concomitant]
     Route: 065

REACTIONS (3)
  - DYSPNOEA [None]
  - FEELING ABNORMAL [None]
  - SWELLING FACE [None]
